FAERS Safety Report 9171701 (Version 2)
Quarter: 2013Q1

REPORT INFORMATION
  Report Type: Spontaneous
  Country: CA (occurrence: None)
  Receive Date: 20130125
  Receipt Date: 20130329
  Transmission Date: 20140127
  Serious: Yes (Other)
  Sender: FDA-Public Use
  Company Number: 2012034305

PATIENT
  Age: 23 Year
  Sex: Male

DRUGS (4)
  1. PRIVIGEN [Suspect]
     Indication: NEUTROPENIA
     Route: 042
     Dates: start: 20121219
  2. PREDNISONE (PREDNISONE) [Concomitant]
  3. PLAQUENIL (00072602) (HYDROXYCHLOROQUINE PHOSPHATE) [Concomitant]
  4. NEUPOGEN (FILGRASTIM) [Concomitant]

REACTIONS (7)
  - Drug intolerance [None]
  - Hypersensitivity [None]
  - Sinus tachycardia [None]
  - Palpitations [None]
  - Pyrexia [None]
  - Chills [None]
  - Vomiting [None]
